FAERS Safety Report 4563044-5 (Version None)
Quarter: 2005Q1

REPORT INFORMATION
  Report Type: 
  Country: None (occurrence: None)
  Receive Date: 20050125
  Receipt Date: 20050120
  Transmission Date: 20050727
  Serious: Yes (Life-Threatening, Hospitalization)
  Sender: FDA-Public Use
  Company Number: TCI2001A03490

PATIENT
  Age: 76 Year
  Sex: Male

DRUGS (7)
  1. ACTOS [Suspect]
     Indication: DIABETES MELLITUS NON-INSULIN-DEPENDENT
     Dosage: 15 MG (15 MG, 1 IN 1 D), ORAL
     Route: 048
     Dates: start: 20000517, end: 20000618
  2. TICLOPIDINE HCL [Concomitant]
  3. ERYTHROMYCIN [Concomitant]
  4. MOSAPPRIDE CITRATE [Concomitant]
  5. AMBROXOL HYDROCHLORIDE [Concomitant]
  6. GLICLAZIDE [Concomitant]
  7. GLIBENCLAMIDE [Concomitant]

REACTIONS (9)
  - ATRIAL FIBRILLATION [None]
  - CARDIAC FAILURE CONGESTIVE [None]
  - CARDIOMEGALY [None]
  - CYANOSIS [None]
  - GASTRITIS [None]
  - MITRAL VALVE INCOMPETENCE [None]
  - PLEURAL EFFUSION [None]
  - PULMONARY CONGESTION [None]
  - WEIGHT INCREASED [None]
